FAERS Safety Report 24001042 (Version 2)
Quarter: 2024Q3

REPORT INFORMATION
  Report Type: Spontaneous
  Country: US (occurrence: US)
  Receive Date: 20240621
  Receipt Date: 20240919
  Transmission Date: 20241017
  Serious: Yes (Other)
  Sender: PFIZER
  Company Number: US-PFIZER INC-202400197861

PATIENT
  Age: 65 Year
  Sex: Female

DRUGS (5)
  1. XELJANZ XR [Suspect]
     Active Substance: TOFACITINIB CITRATE
     Dosage: 1 TABLET 11 MG DAILY
     Route: 048
     Dates: start: 2019, end: 2024
  2. XELJANZ XR [Suspect]
     Active Substance: TOFACITINIB CITRATE
     Dosage: 1 TABLET 11 MG DAILY
     Route: 048
     Dates: start: 202406
  3. ZYRTEC [Concomitant]
     Active Substance: CETIRIZINE HYDROCHLORIDE
     Dosage: UNK
  4. IMURAN [Concomitant]
     Active Substance: AZATHIOPRINE
     Dosage: UNK
  5. OMEPRAZOLE [Concomitant]
     Active Substance: OMEPRAZOLE
     Dosage: UNK

REACTIONS (4)
  - Tooth infection [Recovered/Resolved]
  - Knee arthroplasty [Not Recovered/Not Resolved]
  - Pain [Recovered/Resolved]
  - Sensitivity to weather change [Unknown]

NARRATIVE: CASE EVENT DATE: 20240722
